FAERS Safety Report 18712849 (Version 1)
Quarter: 2021Q1

REPORT INFORMATION
  Report Type: Spontaneous
  Country: CN (occurrence: CN)
  Receive Date: 20210107
  Receipt Date: 20210107
  Transmission Date: 20210419
  Serious: Yes (Other)
  Sender: FDA-Public Use
  Company Number: CN-SA-2021SA002162

PATIENT

DRUGS (2)
  1. HARNAL [Suspect]
     Active Substance: TAMSULOSIN HYDROCHLORIDE
     Indication: BENIGN PROSTATIC HYPERPLASIA
     Dosage: 0.2 MG, QD
     Route: 048
     Dates: start: 20200729
  2. HARNAL [Suspect]
     Active Substance: TAMSULOSIN HYDROCHLORIDE
     Dosage: 0.2 MG, QD
     Route: 048
     Dates: start: 20201213, end: 20201215

REACTIONS (5)
  - Dyspnoea [Recovered/Resolved]
  - Petit mal epilepsy [Recovering/Resolving]
  - Loss of consciousness [Recovered/Resolved]
  - Chest discomfort [Recovered/Resolved]
  - Sexually inappropriate behaviour [Unknown]

NARRATIVE: CASE EVENT DATE: 2020
